FAERS Safety Report 12845129 (Version 2)
Quarter: 2017Q2

REPORT INFORMATION
  Report Type: Spontaneous
  Country: US (occurrence: US)
  Receive Date: 20161013
  Receipt Date: 20170420
  Transmission Date: 20170830
  Serious: No
  Sender: FDA-Public Use
  Company Number: US-TEVA-698763USA

PATIENT
  Age: 41 Year
  Sex: Male

DRUGS (2)
  1. BENADRYL [Concomitant]
     Active Substance: DIPHENHYDRAMINE HYDROCHLORIDE
  2. COPAXONE [Suspect]
     Active Substance: GLATIRAMER ACETATE
     Indication: MULTIPLE SCLEROSIS
     Dosage: 17.1429 MILLIGRAM DAILY;
     Route: 058
     Dates: start: 201512

REACTIONS (6)
  - Fall [Unknown]
  - Fatigue [Unknown]
  - Rash [Unknown]
  - Injection site reaction [Unknown]
  - Injection site pain [Unknown]
  - Headache [Unknown]

NARRATIVE: CASE EVENT DATE: 201608
